FAERS Safety Report 9668881 (Version 7)
Quarter: 2015Q2

REPORT INFORMATION
  Report Type: Spontaneous
  Country: GB (occurrence: GB)
  Receive Date: 20131105
  Receipt Date: 20150413
  Transmission Date: 20150821
  Serious: Yes (Hospitalization, Other)
  Sender: FDA-Public Use
  Company Number: PHFR2013GB006180

PATIENT
  Age: 42 Year
  Sex: Male

DRUGS (7)
  1. CLOZARIL [Suspect]
     Active Substance: CLOZAPINE
     Dosage: 175 MG, QD
     Route: 048
     Dates: start: 20101231
  2. CLOZARIL [Suspect]
     Active Substance: CLOZAPINE
     Dosage: 175 MG, QD
     Route: 048
     Dates: start: 20101214
  3. CLOZARIL [Suspect]
     Active Substance: CLOZAPINE
     Dosage: 75 MG, QD (50 MG PLUS 25 MG)
     Route: 048
     Dates: start: 20110121
  4. CLOZARIL [Suspect]
     Active Substance: CLOZAPINE
     Indication: SCHIZOPHRENIA
     Dosage: UNK
     Route: 048
     Dates: start: 20041206
  5. CLOZARIL [Suspect]
     Active Substance: CLOZAPINE
     Dosage: UNK
     Route: 048
     Dates: end: 2008
  6. PROPRANOLOL [Concomitant]
     Active Substance: PROPRANOLOL\PROPRANOLOL HYDROCHLORIDE
     Indication: ANXIETY
     Dosage: 60 MG, QD
     Route: 048
  7. HYOSCINE HYDROCHLORIDE [Concomitant]
     Indication: SALIVARY HYPERSECRETION
     Dosage: 1 MG, QD
     Route: 048

REACTIONS (13)
  - Renal impairment [Unknown]
  - Neutrophil count decreased [Recovered/Resolved]
  - White blood cell count decreased [Recovered/Resolved]
  - White blood cell count increased [Recovered/Resolved]
  - Infection [Unknown]
  - Neutrophil count increased [Recovered/Resolved]
  - Glomerular filtration rate decreased [Not Recovered/Not Resolved]
  - Neutrophil count decreased [Recovered/Resolved]
  - Mental impairment [Unknown]
  - White blood cell count decreased [Recovered/Resolved]
  - Renal cancer metastatic [Unknown]
  - Lymphoma [Unknown]
  - Platelet count decreased [Recovered/Resolved]

NARRATIVE: CASE EVENT DATE: 20140114
